FAERS Safety Report 10154908 (Version 1)
Quarter: 2014Q2

REPORT INFORMATION
  Report Type: Spontaneous
  Country: US (occurrence: None)
  Receive Date: 20140505
  Receipt Date: 20140505
  Transmission Date: 20141212
  Serious: Yes (Disabling)
  Sender: FDA-Public Use
  Company Number: None

PATIENT
  Age: 73 Year
  Sex: Female
  Weight: 58.97 kg

DRUGS (1)
  1. CATAPRES [Suspect]
     Indication: HYPERTENSION
     Dosage: 3 PILLS THREE TIMES DAILY TAKEN BY MOUTH
     Route: 048
     Dates: start: 20130924, end: 20140502

REACTIONS (8)
  - Chills [None]
  - Heart rate increased [None]
  - Blood pressure increased [None]
  - Hyperventilation [None]
  - Respiratory rate decreased [None]
  - Somnolence [None]
  - Asthenia [None]
  - Headache [None]
